FAERS Safety Report 14332776 (Version 1)
Quarter: 2017Q4

REPORT INFORMATION
  Report Type: Spontaneous
  Country: CZ (occurrence: CZ)
  Receive Date: 20171228
  Receipt Date: 20171228
  Transmission Date: 20180321
  Serious: Yes (Disabling, Other)
  Sender: FDA-Public Use
  Company Number: CZ-JNJFOC-20171231894

PATIENT
  Age: 2 Year
  Sex: Female
  Weight: 14 kg

DRUGS (3)
  1. KEPPRA [Suspect]
     Active Substance: LEVETIRACETAM
     Indication: EPILEPSY
     Dosage: 240 MG/L
     Route: 065
  2. DEPAKINE [Suspect]
     Active Substance: VALPROATE SODIUM
     Indication: EPILEPSY
     Dosage: 220MG/L
     Route: 065
  3. TOPAMAX [Suspect]
     Active Substance: TOPIRAMATE
     Indication: EPILEPSY
     Route: 048

REACTIONS (2)
  - Psychomotor skills impaired [Unknown]
  - Attention deficit/hyperactivity disorder [Unknown]

NARRATIVE: CASE EVENT DATE: 201703
